FAERS Safety Report 5157921-4 (Version None)
Quarter: 2006Q4

REPORT INFORMATION
  Report Type: 
  Country: None (occurrence: None)
  Receive Date: 20061116
  Receipt Date: 20061103
  Transmission Date: 20070319
  Serious: Yes (Hospitalization, Other)
  Sender: FDA-Public Use
  Company Number: 2006136152

PATIENT
  Age: 70 Year
  Sex: Male
  Weight: 86.637 kg

DRUGS (7)
  1. NEURONTIN [Suspect]
     Indication: DIABETIC NEUROPATHY
  2. ALL OTHER THERAPEUTIC PRODUCTS [Suspect]
  3. METFORMIN HCL [Concomitant]
  4. SYNTHROID [Concomitant]
  5. LOPRESSOR [Concomitant]
  6. BENICAR [Concomitant]
  7. INSULIN (INSULIN) [Concomitant]

REACTIONS (13)
  - BLOOD GLUCOSE INCREASED [None]
  - BLOOD POTASSIUM INCREASED [None]
  - DRUG INEFFECTIVE [None]
  - HEPATIC FAILURE [None]
  - LYMPHOMA [None]
  - MALAISE [None]
  - MOUTH ULCERATION [None]
  - MUSCULAR WEAKNESS [None]
  - MYOCARDIAL INFARCTION [None]
  - NEOPLASM MALIGNANT [None]
  - STOMACH DISCOMFORT [None]
  - SUNBURN [None]
  - WEIGHT DECREASED [None]
